FAERS Safety Report 6998078-4 (Version None)
Quarter: 2010Q3

REPORT INFORMATION
  Report Type: 
  Country: None (occurrence: None)
  Receive Date: 20100920
  Receipt Date: 20100906
  Transmission Date: 20110219
  Serious: No
  Sender: FDA-Public Use
  Company Number: CH-ELI_LILLY_AND_COMPANY-CH201009002629

PATIENT
  Age: 66 Year
  Sex: Male
  Weight: 76 kg

DRUGS (3)
  1. CIALIS [Suspect]
     Indication: ERECTILE DYSFUNCTION
     Dosage: 20 MG, UNK
     Route: 048
     Dates: start: 20100620
  2. PRADIF [Concomitant]
     Indication: BENIGN PROSTATIC HYPERPLASIA
     Dosage: 5 UG, DAILY (1/D)
     Route: 048
  3. DORMICUM [Concomitant]
     Indication: SLEEP DISORDER
     Dosage: 7.5 MG, AS NEEDED
     Route: 048

REACTIONS (3)
  - EYE DISORDER [None]
  - FLUSHING [None]
  - HEADACHE [None]
